FAERS Safety Report 10200194 (Version 1)
Quarter: 2014Q2

REPORT INFORMATION
  Report Type: Spontaneous
  Country: US (occurrence: US)
  Receive Date: 20140527
  Receipt Date: 20140527
  Transmission Date: 20141212
  Serious: No
  Sender: FDA-Public Use
  Company Number: US-ENDO PHARMACEUTICALS INC.-GILD20140005

PATIENT
  Sex: Female

DRUGS (1)
  1. GILDESS FE 1/20 TABLETS [Suspect]
     Indication: ORAL CONTRACEPTION
     Dosage: 1/20
     Route: 048
     Dates: start: 201303

REACTIONS (4)
  - Headache [Not Recovered/Not Resolved]
  - Breast swelling [Not Recovered/Not Resolved]
  - Dysmenorrhoea [Not Recovered/Not Resolved]
  - Menorrhagia [Not Recovered/Not Resolved]
